FAERS Safety Report 17342488 (Version 1)
Quarter: 2020Q1

REPORT INFORMATION
  Report Type: Spontaneous
  Country: US (occurrence: US)
  Receive Date: 20200129
  Receipt Date: 20200129
  Transmission Date: 20200409
  Serious: No
  Sender: FDA-Public Use
  Company Number: US-ALLERGAN-1905957US

PATIENT

DRUGS (1)
  1. BOTOX COSMETIC [Suspect]
     Active Substance: ONABOTULINUMTOXINA
     Indication: SKIN WRINKLING
     Dosage: ACTUAL: 4 UNITS TO EACH SIDE OF MOUTH
     Route: 030

REACTIONS (4)
  - Pain [Not Recovered/Not Resolved]
  - Off label use [Unknown]
  - Dysphagia [Recovered/Resolved]
  - Facial paresis [Recovered/Resolved]
